FAERS Safety Report 18223596 (Version 1)
Quarter: 2020Q3

REPORT INFORMATION
  Report Type: Spontaneous
  Country: US (occurrence: US)
  Receive Date: 20200901
  Receipt Date: 20200901
  Transmission Date: 20201103
  Serious: Yes (Hospitalization)
  Sender: FDA-Public Use
  Company Number: None

PATIENT
  Age: 60 Year
  Sex: Female
  Weight: 80 kg

DRUGS (1)
  1. MESALAMINE (MESALAMINE 375MG CAP, SA) [Suspect]
     Active Substance: MESALAMINE
     Indication: COLITIS ULCERATIVE
     Dosage: ?          OTHER FREQUENCY:AM;?
     Route: 048
     Dates: start: 20200313, end: 20200630

REACTIONS (4)
  - Interstitial lung disease [None]
  - Pneumonia [None]
  - Hypersensitivity [None]
  - Fluid overload [None]

NARRATIVE: CASE EVENT DATE: 20200605
